FAERS Safety Report 4307338-7 (Version None)
Quarter: 2004Q1

REPORT INFORMATION
  Report Type: 
  Country: None (occurrence: None)
  Receive Date: 20040226
  Receipt Date: 20040213
  Transmission Date: 20041129
  Serious: Yes (Hospitalization, Other)
  Sender: FDA-Public Use
  Company Number: 2004010139

PATIENT
  Age: 60 Year
  Sex: Male
  Weight: 76.2043 kg

DRUGS (16)
  1. LIPITOR [Suspect]
     Indication: ILL-DEFINED DISORDER
     Dates: end: 20040201
  2. VFEND [Suspect]
     Indication: ARTHRITIS FUNGAL
     Dosage: INTRAVENOUS
     Route: 042
     Dates: start: 20040201, end: 20040212
  3. VFEND [Suspect]
     Indication: CANDIDIASIS
     Dosage: INTRAVENOUS
     Route: 042
     Dates: start: 20040201, end: 20040212
  4. VFEND [Suspect]
     Indication: SEPSIS
     Dosage: INTRAVENOUS
     Route: 042
     Dates: start: 20040201, end: 20040212
  5. MEDROL [Suspect]
     Indication: ILL-DEFINED DISORDER
     Dosage: 80 MG (DAILY)
     Dates: end: 20040201
  6. ZOLPIDEM TARTRATE [Concomitant]
  7. LEVOTHYROXINE SODIUM [Concomitant]
  8. LIOTHYRONINE SODIUM [Concomitant]
  9. CALCIUM (CALCIUM) [Concomitant]
  10. ERGOCALCIFEROL (ERGOCALCIFEROL) [Concomitant]
  11. INSULIN [Concomitant]
  12. PANCREATIN TRIPLE STRENGTH CAP [Concomitant]
  13. SULFASALAZINE [Concomitant]
  14. SOTALOL HCL [Concomitant]
  15. NITROGLYCERIN [Concomitant]
  16. ERGOCALCIFEROL (ERGOCALCIFEROL) [Concomitant]

REACTIONS (13)
  - ABDOMINAL PAIN [None]
  - ARTHRITIS FUNGAL [None]
  - AZOTAEMIA [None]
  - BLOOD LACTATE DEHYDROGENASE INCREASED [None]
  - BLOOD UREA INCREASED [None]
  - CANDIDIASIS [None]
  - CHROMATOPSIA [None]
  - COLITIS ULCERATIVE [None]
  - MALABSORPTION [None]
  - OLIGURIA [None]
  - PITTING OEDEMA [None]
  - SEPSIS [None]
  - VISUAL DISTURBANCE [None]
